FAERS Safety Report 8519366 (Version 3)
Quarter: 2013Q2

REPORT INFORMATION
  Report Type: Spontaneous
  Country: US (occurrence: US)
  Receive Date: 20120418
  Receipt Date: 20130403
  Transmission Date: 20140414
  Serious: Yes (Hospitalization)
  Sender: FDA-Public Use
  Company Number: US-BAYER-2012-036945

PATIENT
  Age: 27 Year
  Sex: Female
  Weight: 45.35 kg

DRUGS (5)
  1. YAZ [Suspect]
     Indication: CONTRACEPTION
     Dosage: UNK
     Dates: start: 2006, end: 200704
  2. ZOFRAN [Concomitant]
     Dosage: UNK
     Dates: start: 200704
  3. FAMOTIDINE [Concomitant]
     Dosage: 20 MG, UNK
  4. HYDROCODONE [HYDROCODONE] [Concomitant]
     Dosage: 500 MG, UNK
  5. IBUPROFEN [Concomitant]
     Dosage: 800 MG, UNK

REACTIONS (4)
  - Cholecystitis [None]
  - Pain [None]
  - Injury [None]
  - Pain [None]
